FAERS Safety Report 16357300 (Version 1)
Quarter: 2019Q2

REPORT INFORMATION
  Report Type: Spontaneous
  Country: US (occurrence: US)
  Receive Date: 20190527
  Receipt Date: 20190527
  Transmission Date: 20190711
  Serious: No
  Sender: FDA-Public Use
  Company Number: US-UMEDICA-000004

PATIENT
  Age: 80 Year
  Sex: Female

DRUGS (1)
  1. CHLORTHALIDONE. [Suspect]
     Active Substance: CHLORTHALIDONE
     Indication: PRODUCT USED FOR UNKNOWN INDICATION
     Dosage: CHLORTHALIDONE 25MG

REACTIONS (5)
  - Feeling abnormal [Unknown]
  - Lethargy [Unknown]
  - Oedema peripheral [Unknown]
  - Product substitution issue [Unknown]
  - Fatigue [Unknown]
